FAERS Safety Report 12211858 (Version 1)
Quarter: 2016Q1

REPORT INFORMATION
  Report Type: Spontaneous
  Country: DE (occurrence: DE)
  Receive Date: 20160325
  Receipt Date: 20160325
  Transmission Date: 20160526
  Serious: Yes (Hospitalization)
  Sender: FDA-Public Use
  Company Number: GXKR2016DE001162

PATIENT

DRUGS (1)
  1. BELLA HEXAL [Suspect]
     Active Substance: CYPROTERONE ACETATE\ETHINYL ESTRADIOL
     Indication: CONTRACEPTION
     Dosage: DAILY INTAKE
     Route: 048
     Dates: start: 199505

REACTIONS (4)
  - Hyponatraemia [Unknown]
  - Hypokalaemia [Unknown]
  - Intracranial venous sinus thrombosis [Not Recovered/Not Resolved]
  - Cerebral haemorrhage [Not Recovered/Not Resolved]

NARRATIVE: CASE EVENT DATE: 20151126
